FAERS Safety Report 24140745 (Version 1)
Quarter: 2024Q3

REPORT INFORMATION
  Report Type: Report from Study
  Country: DK (occurrence: DK)
  Receive Date: 20240726
  Receipt Date: 20240726
  Transmission Date: 20241017
  Serious: Yes (Other)
  Sender: MYLAN
  Company Number: DK-MYLANLABS-2024M1068775

PATIENT
  Sex: Female

DRUGS (4)
  1. CISPLATIN [Suspect]
     Active Substance: CISPLATIN
     Indication: Metastases to peritoneum
     Dosage: UNK (AEROSOL)
     Route: 033
  2. CISPLATIN [Suspect]
     Active Substance: CISPLATIN
     Indication: Ovarian cancer metastatic
  3. DOXORUBICIN [Suspect]
     Active Substance: DOXORUBICIN
     Indication: Metastases to peritoneum
     Dosage: UNK (AEROSOL)
     Route: 033
  4. DOXORUBICIN [Suspect]
     Active Substance: DOXORUBICIN
     Indication: Ovarian cancer metastatic

REACTIONS (1)
  - Pulmonary embolism [Unknown]
